FAERS Safety Report 9445857 (Version 1)
Quarter: 2013Q3

REPORT INFORMATION
  Report Type: Spontaneous
  Country: IT (occurrence: IT)
  Receive Date: 20130807
  Receipt Date: 20130807
  Transmission Date: 20140515
  Serious: Yes (Other)
  Sender: FDA-Public Use
  Company Number: IT-BRISTOL-MYERS SQUIBB COMPANY-19148311

PATIENT
  Age: 85 Year
  Sex: Male

DRUGS (10)
  1. COUMADIN TABS 5 MG [Suspect]
     Indication: THROMBOSIS PROPHYLAXIS
     Dosage: 1DF: 1 UNIT. INTER:15-MAY-2013. RESTART: UNK DATE
     Route: 048
     Dates: start: 20130101
  2. RAMIPRIL [Concomitant]
     Route: 048
  3. ALLOPURINOL [Concomitant]
     Route: 048
  4. CITALOPRAM [Concomitant]
     Route: 048
  5. GARDENALE [Concomitant]
     Route: 048
  6. LASIX [Concomitant]
     Dosage: TABS
     Route: 048
  7. FOLINA [Concomitant]
  8. FERRO-GRADUMET [Concomitant]
     Route: 048
  9. PANTORC [Concomitant]
     Route: 048
  10. KANRENOL [Concomitant]
     Route: 048

REACTIONS (4)
  - Gastrointestinal haemorrhage [Recovering/Resolving]
  - Haematemesis [Recovering/Resolving]
  - Melaena [Recovering/Resolving]
  - Pallor [Recovering/Resolving]
